FAERS Safety Report 20264687 (Version 1)
Quarter: 2021Q4

REPORT INFORMATION
  Report Type: Spontaneous
  Country: US (occurrence: None)
  Receive Date: 20211230
  Receipt Date: 20211230
  Transmission Date: 20220303
  Serious: No
  Sender: FDA-Public Use
  Company Number: None

PATIENT
  Age: 70 Year
  Sex: Female

DRUGS (1)
  1. MYCOPHENOLIC ACID [Suspect]
     Active Substance: MYCOPHENOLIC ACID
     Indication: Liver transplant
     Dosage: FREQUENCY : EVERY 12 HOURS;?
     Route: 048
     Dates: end: 20211002

REACTIONS (4)
  - Oedema [None]
  - Hypersomnia [None]
  - Hepatic enzyme increased [None]
  - Renal impairment [None]

NARRATIVE: CASE EVENT DATE: 20211108
